FAERS Safety Report 8055051-5 (Version None)
Quarter: 2011Q4

REPORT INFORMATION
  Report Type: 
  Country: None (occurrence: None)
  Receive Date: 20111216
  Receipt Date: 20110517
  Transmission Date: 20120403
  Serious: Yes (Other)
  Sender: FDA-Public Use
  Company Number: 278342USA

PATIENT
  Age: 35 Year
  Sex: Female
  Weight: 155 kg

DRUGS (3)
  1. PARAGARD T 380A [Suspect]
     Indication: CONTRACEPTION
     Dosage: I.U.
     Dates: start: 20071001
  2. LISINOPRIL [Concomitant]
  3. SERTRALINE HYDROCHLORIDE [Concomitant]

REACTIONS (3)
  - DEVICE DISLOCATION [None]
  - VAGINAL INFECTION [None]
  - DEVICE EXPULSION [None]
